FAERS Safety Report 10346815 (Version 9)
Quarter: 2015Q4

REPORT INFORMATION
  Report Type: Report from Study
  Country: DZ (occurrence: DZ)
  Receive Date: 20140729
  Receipt Date: 20151202
  Transmission Date: 20160304
  Serious: Yes (Life-Threatening, Hospitalization, Disabling, Other)
  Sender: FDA-Public Use
  Company Number: DZ-ROCHE-1440304

PATIENT
  Age: 45 Year
  Sex: Female

DRUGS (8)
  1. ALBUMINE [Concomitant]
     Route: 065
     Dates: start: 20140720, end: 20140721
  2. OMEPRAZOLE. [Concomitant]
     Active Substance: OMEPRAZOLE
     Route: 065
     Dates: start: 20140720
  3. PERTUZUMAB [Suspect]
     Active Substance: PERTUZUMAB
     Dosage: MAINTANANCE DOSE?DATE OF LAST DOSE PRIOR TO ADVERSE EVENT- 24/JUN/2014
     Route: 042
     Dates: start: 20140511
  4. PERTUZUMAB [Suspect]
     Active Substance: PERTUZUMAB
     Indication: HER-2 POSITIVE BREAST CANCER
     Dosage: LOADING DOSE
     Route: 042
     Dates: start: 20140420, end: 20140420
  5. TRASTUZUMAB [Suspect]
     Active Substance: TRASTUZUMAB
     Indication: HER-2 POSITIVE BREAST CANCER
     Dosage: LOADING DOSE
     Route: 042
     Dates: start: 20140421, end: 20140421
  6. TEMGESIC [Concomitant]
     Active Substance: BUPRENORPHINE HYDROCHLORIDE
     Indication: BONE PAIN
     Route: 065
     Dates: start: 20140410
  7. SOLUPRED (PREDNISOLONE) [Concomitant]
     Active Substance: PREDNISOLONE
     Route: 065
     Dates: start: 20140720, end: 20140723
  8. TRASTUZUMAB [Suspect]
     Active Substance: TRASTUZUMAB
     Dosage: MAINTANANCE DOSE?MOST RECENT DOSE PRIOR TO ONSET OF ADVERSE EVENT 24/JUN/2014
     Route: 042
     Dates: start: 20140512

REACTIONS (3)
  - Ejection fraction decreased [Recovered/Resolved]
  - Cardiac failure [Not Recovered/Not Resolved]
  - Neutropenia [Recovered/Resolved]

NARRATIVE: CASE EVENT DATE: 20140621
